FAERS Safety Report 7577704-5 (Version None)
Quarter: 2011Q2

REPORT INFORMATION
  Report Type: 
  Country: None (occurrence: None)
  Receive Date: 20110628
  Receipt Date: 20110613
  Transmission Date: 20111010
  Serious: Yes (Hospitalization)
  Sender: FDA-Public Use
  Company Number: IR-WATSON-2011-06094

PATIENT
  Age: 80 Year
  Sex: Male

DRUGS (2)
  1. ALTOPREV [Suspect]
     Indication: HYPERLIPIDAEMIA
     Dosage: 40 MG, DAILY
  2. DILTIAZEM HYDROCHLORIDE [Suspect]
     Indication: HYPERTENSION
     Dosage: UNK

REACTIONS (2)
  - RHABDOMYOLYSIS [None]
  - DRUG INTERACTION [None]
